FAERS Safety Report 19505986 (Version 2)
Quarter: 2021Q3

REPORT INFORMATION
  Report Type: Spontaneous
  Country: DE (occurrence: DE)
  Receive Date: 20210708
  Receipt Date: 20210907
  Transmission Date: 20211014
  Serious: Yes (Death, Other)
  Sender: FDA-Public Use
  Company Number: DE-ALXN-A202104692

PATIENT
  Age: 12 Week
  Sex: Male

DRUGS (2)
  1. KANUMA [Suspect]
     Active Substance: SEBELIPASE ALFA
     Indication: LYSOSOMAL ACID LIPASE DEFICIENCY
     Dosage: 3 MG/KG PRESUMED DOSAGE
     Route: 065
     Dates: start: 20210312
  2. KANUMA [Suspect]
     Active Substance: SEBELIPASE ALFA
     Dosage: 2 VIALS
     Route: 065

REACTIONS (4)
  - Death [Fatal]
  - Waist circumference increased [Unknown]
  - Malaise [Unknown]
  - Food intolerance [Unknown]
